FAERS Safety Report 25006400 (Version 3)
Quarter: 2025Q2

REPORT INFORMATION
  Report Type: Spontaneous
  Country: JP (occurrence: JP)
  Receive Date: 20250224
  Receipt Date: 20250624
  Transmission Date: 20250716
  Serious: Yes (Death, Other)
  Sender: GLAXOSMITHKLINE
  Company Number: JP-GSKJP-JP2024JPN135673AA

PATIENT
  Age: 58 Year
  Sex: Male

DRUGS (17)
  1. DAPRODUSTAT [Suspect]
     Active Substance: DAPRODUSTAT
     Indication: Nephrogenic anaemia
  2. DAPRODUSTAT [Suspect]
     Active Substance: DAPRODUSTAT
  3. DAPRODUSTAT [Suspect]
     Active Substance: DAPRODUSTAT
  4. DAPRODUSTAT [Suspect]
     Active Substance: DAPRODUSTAT
  5. DAPRODUSTAT [Suspect]
     Active Substance: DAPRODUSTAT
  6. DAPRODUSTAT [Suspect]
     Active Substance: DAPRODUSTAT
  7. DAPRODUSTAT [Suspect]
     Active Substance: DAPRODUSTAT
  8. DAPRODUSTAT [Suspect]
     Active Substance: DAPRODUSTAT
  9. DAPRODUSTAT [Suspect]
     Active Substance: DAPRODUSTAT
  10. DAPRODUSTAT [Suspect]
     Active Substance: DAPRODUSTAT
  11. SULFAMETHOXAZOLE\TRIMETHOPRIM [Concomitant]
     Active Substance: SULFAMETHOXAZOLE\TRIMETHOPRIM
  12. ASPIRIN [Concomitant]
     Active Substance: ASPIRIN
  13. PREDNISOLONE [Concomitant]
     Active Substance: PREDNISOLONE
  14. LANSOPRAZOLE [Concomitant]
     Active Substance: LANSOPRAZOLE
  15. NEORAL [Concomitant]
     Active Substance: CYCLOSPORINE
  16. EVOCALCET [Concomitant]
     Active Substance: EVOCALCET
  17. CARBOCYSTEINE [Concomitant]
     Active Substance: CARBOCYSTEINE

REACTIONS (4)
  - Renal vein thrombosis [Fatal]
  - Dysphagia [Unknown]
  - Product use issue [Unknown]
  - Off label use [Unknown]

NARRATIVE: CASE EVENT DATE: 20240607
